FAERS Safety Report 14094556 (Version 1)
Quarter: 2017Q4

REPORT INFORMATION
  Report Type: Spontaneous
  Country: US (occurrence: US)
  Receive Date: 20171016
  Receipt Date: 20171016
  Transmission Date: 20180321
  Serious: Yes (Other)
  Sender: FDA-Public Use
  Company Number: PHEH2017US033081

PATIENT
  Age: 75 Year
  Sex: Female

DRUGS (1)
  1. OXAZEPAM CAPSULES USP [Suspect]
     Active Substance: OXAZEPAM
     Indication: FIBROMYALGIA
     Route: 065

REACTIONS (2)
  - Product use in unapproved indication [Unknown]
  - Neoplasm malignant [Not Recovered/Not Resolved]
